FAERS Safety Report 7974908-4 (Version None)
Quarter: 2011Q4

REPORT INFORMATION
  Report Type: 
  Country: None (occurrence: None)
  Receive Date: 20111213
  Receipt Date: 20111020
  Transmission Date: 20120403
  Serious: Yes (Other)
  Sender: FDA-Public Use
  Company Number: US-AMGEN-USASP2011054263

PATIENT
  Sex: Male

DRUGS (9)
  1. DUETACT [Concomitant]
     Dosage: UNK
  2. ALLOPURINOL [Concomitant]
     Dosage: UNK
  3. CLONIDINE [Concomitant]
     Dosage: UNK
  4. FOLIC ACID [Concomitant]
     Dosage: UNK
  5. JALYN [Concomitant]
     Dosage: UNK
  6. ONGLYZA [Concomitant]
     Dosage: UNK
  7. NORVASC [Concomitant]
     Dosage: UNK
  8. ENBREL [Suspect]
     Indication: PRODUCT USED FOR UNKNOWN INDICATION
     Dosage: 50 MG, QWK
  9. HYDROCODONE [Concomitant]
     Dosage: UNK

REACTIONS (1)
  - SKIN CANCER [None]
